FAERS Safety Report 4996548-1 (Version None)
Quarter: 2006Q2

REPORT INFORMATION
  Report Type: 
  Country: None (occurrence: None)
  Receive Date: 20060509
  Receipt Date: 20060405
  Transmission Date: 20061013
  Serious: Yes (Other)
  Sender: FDA-Public Use
  Company Number: SE-AMGEN-UK175580

PATIENT
  Age: 65 Year
  Sex: Male

DRUGS (4)
  1. NEUPOGEN [Suspect]
     Indication: PERIPHERAL BLOOD STEM CELL APHERESIS
     Route: 058
  2. CYCLOPHOSPHAMIDE [Concomitant]
     Route: 065
  3. HEPARIN [Concomitant]
     Route: 065
  4. TINZAPARIN SODIUM [Concomitant]
     Route: 065

REACTIONS (5)
  - ABDOMINAL DISTENSION [None]
  - ACTIVATED PARTIAL THROMBOPLASTIN TIME PROLONGED [None]
  - HAEMOGLOBIN DECREASED [None]
  - PAIN [None]
  - RETROPERITONEAL HAEMATOMA [None]
